FAERS Safety Report 14014240 (Version 1)
Quarter: 2017Q3

REPORT INFORMATION
  Report Type: Spontaneous
  Country: US (occurrence: None)
  Receive Date: 20170926
  Receipt Date: 20170926
  Transmission Date: 20171128
  Serious: Yes (Hospitalization)
  Sender: FDA-Public Use
  Company Number: None

PATIENT
  Sex: Female
  Weight: 70.31 kg

DRUGS (1)
  1. MIRENA [Suspect]
     Active Substance: LEVONORGESTREL

REACTIONS (17)
  - Device dislocation [None]
  - Scar [None]
  - Weight increased [None]
  - Chest pain [None]
  - Libido decreased [None]
  - Dizziness [None]
  - Back disorder [None]
  - Headache [None]
  - Pain [None]
  - Abdominal distension [None]
  - Vomiting [None]
  - Vision blurred [None]
  - Anxiety [None]
  - Back pain [None]
  - Hypoaesthesia [None]
  - Uterine perforation [None]
  - Depression [None]

NARRATIVE: CASE EVENT DATE: 20170504
